FAERS Safety Report 8297641-0 (Version None)
Quarter: 2012Q2

REPORT INFORMATION
  Report Type: 
  Country: None (occurrence: None)
  Receive Date: 20120419
  Receipt Date: 20120412
  Transmission Date: 20120825
  Serious: Yes (Other)
  Sender: FDA-Public Use
  Company Number: US-PFIZER INC-2012092565

PATIENT
  Sex: Male

DRUGS (2)
  1. NEURONTIN [Suspect]
     Dosage: 800 MG, 3X/DAY
     Route: 048
  2. ZOLOFT [Suspect]
     Dosage: 150 MG, 1X/DAY

REACTIONS (3)
  - RADICULOPATHY [None]
  - PERIPHERAL SENSORIMOTOR NEUROPATHY [None]
  - NERVE COMPRESSION [None]
